FAERS Safety Report 6708157-4 (Version None)
Quarter: 2010Q2

REPORT INFORMATION
  Report Type: 
  Country: None (occurrence: None)
  Receive Date: 20100428
  Receipt Date: 20100413
  Transmission Date: 20101027
  Serious: No
  Sender: FDA-Public Use
  Company Number: SPI201000088

PATIENT
  Age: 42 Year
  Sex: Female
  Weight: 73.5 kg

DRUGS (1)
  1. AMITIZA [Suspect]
     Indication: CONSTIPATION
     Dosage: 8 MCG, ORAL
     Route: 048
     Dates: start: 20090101

REACTIONS (1)
  - DYSPNOEA [None]
